FAERS Safety Report 8694414 (Version 1)
Quarter: 2012Q4

REPORT INFORMATION
  Report Type: 
  Country: CN (occurrence: CN)
  Receive Date: 20120911
  Receipt Date: 20120911
  Transmission Date: 20130627
  Serious: No
  Sender: FDA-Public Use
  Company Number: CN-ASTRAZENECA-2012SE53631

PATIENT
  Sex: Female
  Weight: 64 kg

DRUGS (1)
  1. PLENDIL [Suspect]
     Indication: HYPERTENSION
     Route: 048
     Dates: start: 20071201, end: 20071202

REACTIONS (1)
  - Hypersensitivity [Recovering/Resolving]
